FAERS Safety Report 10678759 (Version 4)
Quarter: 2015Q1

REPORT INFORMATION
  Report Type: Spontaneous
  Country: US (occurrence: US)
  Receive Date: 20141229
  Receipt Date: 20150203
  Transmission Date: 20150720
  Serious: Yes (Hospitalization)
  Sender: FDA-Public Use
  Company Number: US-JNJFOC-20141213940

PATIENT
  Age: 65 Year
  Sex: Male
  Weight: 109.32 kg

DRUGS (1)
  1. NUCYNTA ER [Suspect]
     Active Substance: TAPENTADOL HYDROCHLORIDE
     Indication: BACK PAIN
     Route: 048
     Dates: start: 20141203, end: 20141206

REACTIONS (14)
  - Frustration [Recovering/Resolving]
  - Somnolence [Recovered/Resolved]
  - Speech disorder [Recovered/Resolved]
  - Bradyphrenia [Not Recovered/Not Resolved]
  - Fatigue [Unknown]
  - Dysphagia [Recovered/Resolved]
  - Overdose [Unknown]
  - Hospitalisation [Recovered/Resolved]
  - Unresponsive to stimuli [Recovered/Resolved]
  - Hypertension [Recovering/Resolving]
  - Repetitive speech [Recovered/Resolved]
  - Memory impairment [Not Recovered/Not Resolved]
  - Confusional state [Recovered/Resolved]
  - Activities of daily living impaired [Recovered/Resolved]

NARRATIVE: CASE EVENT DATE: 20141207
